FAERS Safety Report 9216779 (Version 2)
Quarter: 2013Q2

REPORT INFORMATION
  Report Type: Spontaneous
  Country: CO (occurrence: CO)
  Receive Date: 20130408
  Receipt Date: 20130416
  Transmission Date: 20140414
  Serious: Yes (Hospitalization)
  Sender: FDA-Public Use
  Company Number: CO-PFIZER INC-2013108329

PATIENT
  Age: 61 Year
  Sex: Female

DRUGS (2)
  1. SOMESE [Suspect]
     Indication: DEPRESSION
     Dosage: 0.25 MG, 1X/DAY
     Route: 048
     Dates: start: 201110
  2. SOMESE [Suspect]
     Indication: SLEEP DISORDER

REACTIONS (2)
  - Acute myocardial infarction [Recovering/Resolving]
  - Syncope [Unknown]
